FAERS Safety Report 11571219 (Version 4)
Quarter: 2015Q4

REPORT INFORMATION
  Report Type: Report from Study
  Country: GB (occurrence: GB)
  Receive Date: 20150929
  Receipt Date: 20151012
  Transmission Date: 20160304
  Serious: Yes (Death, Life-Threatening, Hospitalization)
  Sender: FDA-Public Use
  Company Number: GB-BAYER-2015-425422

PATIENT
  Age: 17 Year
  Sex: Female
  Weight: 50.5 kg

DRUGS (10)
  1. ONDANSETRON [Concomitant]
     Active Substance: ONDANSETRON
     Indication: NAUSEA
     Dosage: DAILY DOSE 16 MG
     Route: 048
     Dates: start: 20150810
  2. REGORAFENIB [Suspect]
     Active Substance: REGORAFENIB
     Indication: METASTASES TO LUNG
     Dosage: DAILY DOSE 100 MG
     Route: 048
     Dates: start: 20150811, end: 20150813
  3. NORETHISTERONE [Concomitant]
     Active Substance: NORETHINDRONE
     Indication: AMENORRHOEA
     Dosage: 350 MCG
     Route: 048
     Dates: start: 201507
  4. REGORAFENIB [Suspect]
     Active Substance: REGORAFENIB
     Indication: NEPHROBLASTOMA
     Dosage: DAILY DOSE 120 MG
     Route: 048
     Dates: start: 20150724, end: 20150805
  5. OMEPRAZOLE. [Concomitant]
     Active Substance: OMEPRAZOLE
     Indication: NAUSEA
     Dosage: DAILY DOSE 20 MG
     Route: 048
     Dates: start: 20150821
  6. ONDANSETRON [Concomitant]
     Active Substance: ONDANSETRON
     Indication: NAUSEA
     Dosage: DAILY DOSE 20 MG
     Route: 048
     Dates: start: 20150821
  7. REGORAFENIB [Suspect]
     Active Substance: REGORAFENIB
     Indication: NEPHROBLASTOMA
     Dosage: DAILY DOSE 100 MG
     Route: 048
     Dates: start: 20150821, end: 20150910
  8. FENTANYL. [Concomitant]
     Active Substance: FENTANYL
     Indication: PAIN
     Dosage: 6 MCG DAILY
     Route: 062
     Dates: start: 20150910
  9. GABAPENTIN. [Concomitant]
     Active Substance: GABAPENTIN
     Indication: PAIN
     Dosage: DAILY DOSE 1800 MG
     Route: 048
     Dates: start: 20150506
  10. MORPHINE [Concomitant]
     Active Substance: MORPHINE
     Indication: PAIN
     Dosage: DAILY DOSE 10 MG
     Route: 048
     Dates: start: 20150717, end: 20150910

REACTIONS (3)
  - Pericardial effusion [Recovered/Resolved]
  - Death [Fatal]
  - Pyrexia [Recovered/Resolved]

NARRATIVE: CASE EVENT DATE: 20150916
